FAERS Safety Report 5701699-X (Version None)
Quarter: 2008Q2

REPORT INFORMATION
  Report Type: 
  Country: None (occurrence: None)
  Receive Date: 20080408
  Receipt Date: 20080402
  Transmission Date: 20081010
  Serious: Yes (Other)
  Sender: FDA-Public Use
  Company Number: 2008SP006358

PATIENT
  Age: 62 Year
  Sex: Male
  Weight: 75.7507 kg

DRUGS (12)
  1. NASONEX [Suspect]
     Indication: DRUG USE FOR UNKNOWN INDICATION
     Dosage: NAS
     Route: 045
     Dates: start: 20080307
  2. ALBUTEROL [Suspect]
     Indication: DRUG USE FOR UNKNOWN INDICATION
     Dosage: PO
     Route: 048
     Dates: start: 20080307
  3. CHANTIX [Suspect]
     Indication: SMOKING CESSATION THERAPY
     Dates: start: 20080307
  4. PREDNISONE [Suspect]
     Indication: DRUG USE FOR UNKNOWN INDICATION
     Dates: start: 20080307
  5. SPIRIVA [Suspect]
     Indication: DRUG USE FOR UNKNOWN INDICATION
     Dates: start: 20080307
  6. ADVAIR HFA [Suspect]
     Indication: DRUG USE FOR UNKNOWN INDICATION
     Dates: start: 20080307
  7. BENAZEPRIL HYDROCHLORIDE [Suspect]
     Indication: DRUG USE FOR UNKNOWN INDICATION
     Dates: start: 20080307
  8. MELOXICAM [Suspect]
     Indication: DRUG USE FOR UNKNOWN INDICATION
     Dates: start: 20080307
  9. PREVACID [Suspect]
     Indication: DRUG USE FOR UNKNOWN INDICATION
     Dates: start: 20080307
  10. SINGULAIR [Suspect]
     Indication: DRUG USE FOR UNKNOWN INDICATION
     Dates: start: 20080307
  11. DIOVAN [Concomitant]
  12. WELLBUTRIN [Concomitant]

REACTIONS (4)
  - AGGRESSION [None]
  - CONDITION AGGRAVATED [None]
  - HYPERTENSION [None]
  - TREMOR [None]
